FAERS Safety Report 7537005-8 (Version None)
Quarter: 2011Q2

REPORT INFORMATION
  Report Type: 
  Country: None (occurrence: None)
  Receive Date: 20110608
  Receipt Date: 20110608
  Transmission Date: 20111010
  Serious: Yes (Hospitalization)
  Sender: FDA-Public Use
  Company Number: None

PATIENT
  Age: 72 Year
  Sex: Male
  Weight: 81 kg

DRUGS (1)
  1. WARFARIN SODIUM [Suspect]
     Indication: DEEP VEIN THROMBOSIS
     Dosage: 5 MG OTHER PO
     Route: 048

REACTIONS (4)
  - HAEMORRHAGE INTRACRANIAL [None]
  - INTERNATIONAL NORMALISED RATIO INCREASED [None]
  - SUBDURAL HAEMATOMA [None]
  - FOOD INTERACTION [None]
